FAERS Safety Report 18806580 (Version 1)
Quarter: 2021Q1

REPORT INFORMATION
  Report Type: Spontaneous
  Country: US (occurrence: US)
  Receive Date: 20210129
  Receipt Date: 20210129
  Transmission Date: 20210419
  Serious: No
  Sender: FDA-Public Use
  Company Number: US-AMGEN-USASP2021012600

PATIENT
  Age: 55 Year
  Sex: Female

DRUGS (3)
  1. ESTRACE [Concomitant]
     Active Substance: ESTRADIOL
  2. OTEZLA [Suspect]
     Active Substance: APREMILAST
     Indication: PSORIASIS
     Dosage: 30 MILLIGRAM, BID
     Route: 048
     Dates: start: 20180305
  3. VITAMIN D3 [Concomitant]
     Active Substance: CHOLECALCIFEROL

REACTIONS (2)
  - Psoriasis [Not Recovered/Not Resolved]
  - COVID-19 [Not Recovered/Not Resolved]
